FAERS Safety Report 13404368 (Version 1)
Quarter: 2017Q2

REPORT INFORMATION
  Report Type: Spontaneous
  Country: AU (occurrence: AU)
  Receive Date: 20170405
  Receipt Date: 20170405
  Transmission Date: 20170830
  Serious: Yes (Death)
  Sender: FDA-Public Use
  Company Number: AU-009507513-1703AUS013813

PATIENT
  Age: 55 Year
  Sex: Female

DRUGS (7)
  1. DAPTOMYCIN. [Suspect]
     Active Substance: DAPTOMYCIN
  2. FLUCONAZOLE. [Suspect]
     Active Substance: FLUCONAZOLE
  3. METRONIDAZOLE. [Suspect]
     Active Substance: METRONIDAZOLE
  4. CEFTRIAXONE SODIUM. [Suspect]
     Active Substance: CEFTRIAXONE SODIUM
  5. PIPERACILLIN AND TAZOBACTAM [Suspect]
     Active Substance: PIPERACILLIN SODIUM\TAZOBACTAM SODIUM
  6. CIPROFLOXACIN. [Suspect]
     Active Substance: CIPROFLOXACIN
  7. AZITHROMYCIN ANHYDROUS. [Suspect]
     Active Substance: AZITHROMYCIN ANHYDROUS

REACTIONS (1)
  - Drug ineffective [Fatal]
